FAERS Safety Report 10098645 (Version 1)
Quarter: 2014Q2

REPORT INFORMATION
  Report Type: Spontaneous
  Country: US (occurrence: None)
  Receive Date: 20140422
  Receipt Date: 20140422
  Transmission Date: 20141212
  Serious: Yes (Death)
  Sender: FDA-Public Use
  Company Number: None

PATIENT
  Age: 50 Year
  Sex: Male
  Weight: 116 kg

DRUGS (1)
  1. ALEMTUZUMAB [Suspect]
     Indication: HEART TRANSPLANT REJECTION
     Dosage: 0.3MG ONCE INTRAVENOUS
     Route: 042
     Dates: start: 20140324, end: 20140324

REACTIONS (5)
  - Infusion related reaction [None]
  - Tachycardia [None]
  - Myoclonus [None]
  - Pyrexia [None]
  - Arrhythmia [None]
